FAERS Safety Report 12213113 (Version 1)
Quarter: 2016Q1

REPORT INFORMATION
  Report Type: Spontaneous
  Country: US (occurrence: None)
  Receive Date: 20160325
  Receipt Date: 20160325
  Transmission Date: 20160526
  Serious: Yes (Disabling)
  Sender: FDA-Public Use
  Company Number: None

PATIENT
  Age: 38 Year
  Sex: Female
  Weight: 63.05 kg

DRUGS (6)
  1. CAT^S CLAW [Concomitant]
     Active Substance: CAT^S CLAW
  2. WHITE WILLOW BARK [Concomitant]
  3. MULTI-VITAMIN [Concomitant]
     Active Substance: .ALPHA.-TOCOPHEROL ACETATE, DL-\ASCORBIC ACID\CYANOCOBALAMIN\FLUORIDE ION\FOLIC ACID\NIACIN\PYRIDOXINE\RIBOFLAVIN\THIAMINE\VITAMIN A\VITAMIN D
  4. B-COMPLEX VITAMIN [Concomitant]
  5. SILTUSSIN DM [Suspect]
     Active Substance: DEXTROMETHORPHAN HYDROBROMIDE\GUAIFENESIN
     Indication: COUGH
     Route: 048
     Dates: start: 20160324, end: 20160324
  6. CRANBERRY EXTRACT [Concomitant]
     Active Substance: CRANBERRY JUICE

REACTIONS (2)
  - Abdominal pain upper [None]
  - Diarrhoea [None]

NARRATIVE: CASE EVENT DATE: 20160324
